FAERS Safety Report 9840414 (Version 1)
Quarter: 2013Q4

REPORT INFORMATION
  Report Type: Spontaneous
  Country: US (occurrence: None)
  Receive Date: 20131211
  Receipt Date: 20131211
  Transmission Date: 20140711
  Serious: Yes (Other)
  Sender: FDA-Public Use
  Company Number: ALL1-2011-01696

PATIENT
  Age: 20 Month
  Sex: Male
  Weight: 18.9 kg

DRUGS (4)
  1. ELAPRASE (IDURSULFASE) CONCENTRATE FOR SOLUTION FOR INFUSION [Suspect]
     Indication: MUCOPOLYSACCHARIDOSIS II
     Dosage: 1X/WEEK
     Route: 041
     Dates: start: 20090219
  2. NASONEX (MOMETASONE FUROATE) [Concomitant]
  3. GENISTEIN [Concomitant]
  4. VITAMINS NOS [Concomitant]

REACTIONS (2)
  - Pyrexia [None]
  - Upper respiratory tract infection [None]
